FAERS Safety Report 9384329 (Version 1)
Quarter: 2013Q3

REPORT INFORMATION
  Report Type: Report from Study
  Country: BR (occurrence: BR)
  Receive Date: 20130705
  Receipt Date: 20130705
  Transmission Date: 20140515
  Serious: Yes (Hospitalization, Other)
  Sender: FDA-Public Use
  Company Number: PHHY2013BR068320

PATIENT
  Sex: Female

DRUGS (12)
  1. ONBREZ [Suspect]
     Indication: EMPHYSEMA
     Dosage: 300 UG, QD
  2. ONBREZ [Suspect]
     Indication: OFF LABEL USE
  3. FLUCONAZOLE [Suspect]
  4. INSULIN REGULAR HM [Concomitant]
  5. PANTOPRAZOLE [Concomitant]
  6. PURAN T4 [Concomitant]
  7. MODURETIC [Concomitant]
  8. CARBAMAZEPINE [Concomitant]
  9. LOSARTAN [Concomitant]
  10. VASOGARD [Concomitant]
  11. SPIRIVA [Concomitant]
  12. AAS [Concomitant]

REACTIONS (3)
  - General physical health deterioration [Recovered/Resolved]
  - Emphysema [Recovered/Resolved]
  - Diabetes mellitus [Recovered/Resolved]
